FAERS Safety Report 14018979 (Version 1)
Quarter: 2017Q3

REPORT INFORMATION
  Report Type: Spontaneous
  Country: DE (occurrence: DE)
  Receive Date: 20170928
  Receipt Date: 20170928
  Transmission Date: 20171128
  Serious: Yes (Other)
  Sender: FDA-Public Use
  Company Number: DE-MERCK KGAA-2028004

PATIENT
  Age: 42 Year
  Sex: Female

DRUGS (1)
  1. NOVOTHYROX [Suspect]
     Active Substance: LEVOTHYROXINE SODIUM

REACTIONS (6)
  - Hypothyroidism [None]
  - Restlessness [None]
  - Hyperthyroidism [None]
  - Tachycardia [None]
  - Diarrhoea [None]
  - Sleep disorder [None]

NARRATIVE: CASE EVENT DATE: 2017
